FAERS Safety Report 15613477 (Version 4)
Quarter: 2019Q1

REPORT INFORMATION
  Report Type: Report from Study
  Country: US (occurrence: US)
  Receive Date: 20181113
  Receipt Date: 20190125
  Transmission Date: 20190417
  Serious: Yes (Death, Life-Threatening, Hospitalization, Other)
  Sender: FDA-Public Use
  Company Number: US-GILEAD-2018-0355547

PATIENT
  Age: 62 Year
  Sex: Male
  Weight: 125.7 kg

DRUGS (24)
  1. ATEZOLIZUMAB. [Suspect]
     Active Substance: ATEZOLIZUMAB
     Indication: DIFFUSE LARGE B-CELL LYMPHOMA
     Dosage: 1200 MG, ONCE
     Route: 042
     Dates: start: 20180801, end: 20180801
  2. LEVETIRACETAM. [Concomitant]
     Active Substance: LEVETIRACETAM
  3. VALACYCLOVIR                       /01269701/ [Concomitant]
     Active Substance: VALACYCLOVIR HYDROCHLORIDE
  4. OXYCODONE [Concomitant]
     Active Substance: OXYCODONE
     Dosage: UNK
     Dates: start: 20180803
  5. AXICABTAGENE CILOLEUCEL [Suspect]
     Active Substance: AXICABTAGENE CILOLEUCEL
     Indication: DIFFUSE LARGE B-CELL LYMPHOMA
     Dosage: 68 ML, ONCE
     Route: 042
     Dates: start: 20180731, end: 20180731
  6. ATEZOLIZUMAB. [Suspect]
     Active Substance: ATEZOLIZUMAB
     Dosage: 1200 MG, ONCE
     Route: 042
     Dates: start: 20180912, end: 20180912
  7. DEXTROSE. [Concomitant]
     Active Substance: DEXTROSE
  8. FILGRASTIM [Concomitant]
     Active Substance: FILGRASTIM
  9. IBUPROFEN. [Concomitant]
     Active Substance: IBUPROFEN
  10. ONDANSETRON [Concomitant]
     Active Substance: ONDANSETRON
  11. MEDROL [Concomitant]
     Active Substance: METHYLPREDNISOLONE
  12. MYCOSTATIN [Concomitant]
     Active Substance: NYSTATIN
  13. FLUDARABINE [Suspect]
     Active Substance: FLUDARABINE PHOSPHATE
     Indication: BONE MARROW CONDITIONING REGIMEN
     Dosage: 30 MG/M2, QD
     Route: 042
     Dates: start: 20180726, end: 20180728
  14. SODIUM CHLORIDE. [Concomitant]
     Active Substance: SODIUM CHLORIDE
  15. MEPRON                             /00049601/ [Concomitant]
     Active Substance: METHYLPREDNISOLONE
  16. CYCLOPHOSPHAMIDE. [Suspect]
     Active Substance: CYCLOPHOSPHAMIDE
     Indication: BONE MARROW CONDITIONING REGIMEN
     Dosage: 500 MG/M2, QD
     Route: 042
     Dates: start: 20180726, end: 20180728
  17. CEFEPIME [Concomitant]
     Active Substance: CEFEPIME HYDROCHLORIDE
     Dosage: UNK
     Dates: start: 20180801
  18. ACETAMINOPHEN. [Concomitant]
     Active Substance: ACETAMINOPHEN
  19. VANCOMYCIN [Concomitant]
     Active Substance: VANCOMYCIN
     Dosage: UNK
     Dates: start: 20180801
  20. DOCUSATE [Concomitant]
     Active Substance: DOCUSATE
  21. ATEZOLIZUMAB. [Suspect]
     Active Substance: ATEZOLIZUMAB
     Dosage: 1200 MG, ONCE
     Route: 042
     Dates: start: 20180822, end: 20180822
  22. ALBUMIN HUMAN [Concomitant]
     Active Substance: ALBUMIN HUMAN
  23. DIPHENHYDRAMINE. [Concomitant]
     Active Substance: DIPHENHYDRAMINE
  24. MEPERIDINE                         /00016301/ [Concomitant]
     Active Substance: MEPERIDINE

REACTIONS (7)
  - Encephalitis [Not Recovered/Not Resolved]
  - Seizure [Recovered/Resolved]
  - Bacteraemia [Recovered/Resolved]
  - Pneumonia [Not Recovered/Not Resolved]
  - Meningitis aseptic [Fatal]
  - Encephalopathy [Recovered/Resolved]
  - Respiratory failure [Recovered/Resolved]

NARRATIVE: CASE EVENT DATE: 20180805
